FAERS Safety Report 10575252 (Version 2)
Quarter: 2014Q4

REPORT INFORMATION
  Report Type: Other
  Country: IT (occurrence: IT)
  Receive Date: 20141111
  Receipt Date: 20141111
  Transmission Date: 20150529
  Serious: Yes (Other)
  Sender: FDA-Public Use
  Company Number: IT-SUN PHARMACEUTICAL INDUSTRIES LTD-2014SUN02031

PATIENT

DRUGS (3)
  1. OXALIPLATINO SUN 5 MG/ML, CONCENTRATO PER SOLUZIONE PER INFUSIONE [Suspect]
     Active Substance: OXALIPLATIN
     Indication: ADENOCARCINOMA OF COLON
     Dosage: 170 MG CYCLICAL
     Route: 042
     Dates: start: 20140530, end: 20140530
  2. OXALIPLATINO SUN 5 MG/ML, CONCENTRATO PER SOLUZIONE PER INFUSIONE [Suspect]
     Active Substance: OXALIPLATIN
     Dosage: 170 MG,CYCLICAL
     Route: 042
     Dates: start: 20140730, end: 20140912
  3. CAPECITABINA MEDAC 500 MG FILM-COATED TABLET [Suspect]
     Active Substance: CAPECITABINE
     Indication: ADENOCARCINOMA OF COLON
     Dosage: 3000 MG, CYCLICAL
     Route: 048
     Dates: start: 20140530, end: 20140926

REACTIONS (7)
  - Abdominal distension [Recovering/Resolving]
  - Thrombocytopenia [Recovering/Resolving]
  - Infusion site paraesthesia [Recovered/Resolved]
  - Transaminases increased [Recovering/Resolving]
  - Infusion site pain [Recovered/Resolved]
  - Abdominal pain upper [Recovering/Resolving]
  - Leukopenia [Recovering/Resolving]

NARRATIVE: CASE EVENT DATE: 20140530
